FAERS Safety Report 5702752-7 (Version None)
Quarter: 2008Q2

REPORT INFORMATION
  Report Type: 
  Country: None (occurrence: None)
  Receive Date: 20080411
  Receipt Date: 20080402
  Transmission Date: 20081010
  Serious: Yes (Hospitalization)
  Sender: FDA-Public Use
  Company Number: B0515119A

PATIENT
  Age: 37 Year
  Sex: Female

DRUGS (4)
  1. DEROXAT [Suspect]
     Indication: DRUG USE FOR UNKNOWN INDICATION
     Route: 048
  2. CHAMPIX [Suspect]
     Route: 065
     Dates: start: 20080101
  3. LEXOMIL [Concomitant]
     Route: 065
  4. STRESAM [Concomitant]
     Route: 065

REACTIONS (2)
  - SOMNOLENCE [None]
  - SUICIDE ATTEMPT [None]
